FAERS Safety Report 8119705-4 (Version None)
Quarter: 2012Q1

REPORT INFORMATION
  Report Type: 
  Country: None (occurrence: None)
  Receive Date: 20120203
  Receipt Date: 20120117
  Transmission Date: 20120608
  Serious: Yes (Hospitalization)
  Sender: FDA-Public Use
  Company Number: JPI-P-019061

PATIENT
  Age: 34 Year
  Sex: Female
  Weight: 102.9665 kg

DRUGS (34)
  1. SCOPOLAMINE [Suspect]
  2. HYDROCORTISONE [Concomitant]
  3. ALBUTEROL [Concomitant]
  4. MORPHINE SULFATE [Concomitant]
  5. RANITIDINE [Concomitant]
  6. TAMSULOSIN HCL [Concomitant]
  7. OMALIZUMAB [Concomitant]
  8. XYREM [Suspect]
     Indication: CATAPLEXY
     Dosage: (UNKNOWN), ORAL, 3.5 GM 1ST DOSE/2.5 GM 2ND DOSE), ORAL
     Dates: start: 20111001, end: 20110101
  9. XYREM [Suspect]
     Indication: CATAPLEXY
     Dosage: (UNKNOWN), ORAL, 3.5 GM 1ST DOSE/2.5 GM 2ND DOSE), ORAL
     Dates: start: 20110101
  10. LACTULOSE [Concomitant]
  11. PROMETHAZINE [Concomitant]
  12. CICLESONIDE [Concomitant]
  13. LIDOCAINE [Concomitant]
  14. ALPHA LIPOIC ACID [Concomitant]
  15. BACLOFEN [Concomitant]
  16. ALPRAZOLAM [Concomitant]
  17. DEXMETHYLPHENIDATE HCL [Concomitant]
  18. RIFAXIMIN [Concomitant]
  19. OMEPRAZOLE [Concomitant]
  20. CITRUCEL [Concomitant]
  21. HYDROXYZINE [Concomitant]
  22. LACOSAMIDE [Concomitant]
  23. DESVENLAFAXINE SUCCINATE [Concomitant]
  24. AMLODIPINE [Concomitant]
  25. CLONIDINE [Concomitant]
  26. HYDROCHLOROTHIAZIDE [Concomitant]
  27. FROVATRIPTAN SUCCINATE [Concomitant]
  28. METOCLOPRAMIDE [Concomitant]
  29. FLUTICASONE PROPIONATE W/SALMETEROL [Concomitant]
  30. ONDANSETRON HCL [Concomitant]
  31. LINAGLIPTIN [Concomitant]
  32. OMEPRAZOLE [Concomitant]
  33. DICLOFENAC SODIUM [Concomitant]
  34. PRASTERONE [Concomitant]

REACTIONS (3)
  - VIRAL INFECTION [None]
  - DEHYDRATION [None]
  - CONVULSION [None]
